FAERS Safety Report 9513427 (Version 1)
Quarter: 2013Q3

REPORT INFORMATION
  Report Type: Spontaneous
  Country: GB (occurrence: GB)
  Receive Date: 20130910
  Receipt Date: 20130910
  Transmission Date: 20140515
  Serious: Yes (Other)
  Sender: FDA-Public Use
  Company Number: US-TARO-2012P1060820

PATIENT
  Age: 69 Year
  Sex: Male
  Weight: 131.23 kg

DRUGS (15)
  1. WARFARIN [Suspect]
  2. CLINDAMYCIN [Suspect]
     Indication: CELLULITIS
     Route: 042
     Dates: start: 20120913, end: 20120917
  3. AQUEOUS CREAM (CETOSTEARYL ALCOHOL) [Concomitant]
  4. BETAHISTINE [Concomitant]
  5. CICLESONIDE [Concomitant]
  6. DIGOXIN [Concomitant]
  7. DILTIAZEM [Concomitant]
  8. FLUCOLOXACILLIN [Concomitant]
  9. FUROSEMIDE (FRUSEMIDE) [Concomitant]
  10. LUMIGAN (BIMATOPROST) [Concomitant]
  11. OMEPRAZOLE [Concomitant]
  12. SALMETEROL [Concomitant]
  13. TAMSULOSIN [Concomitant]
  14. VENTOLIN (SALBUTAMOL SULPHATE MICRONISED) [Concomitant]
  15. WHITE SOFT PARAFFIN [Concomitant]

REACTIONS (2)
  - Drug interaction [Unknown]
  - International normalised ratio increased [Unknown]
